FAERS Safety Report 4767611-5 (Version None)
Quarter: 2005Q3

REPORT INFORMATION
  Report Type: 
  Country: None (occurrence: None)
  Receive Date: 20050913
  Receipt Date: 20050316
  Transmission Date: 20060218
  Serious: Yes (Hospitalization)
  Sender: FDA-Public Use
  Company Number: US-MERCK-0503USA03280

PATIENT
  Age: 46 Year
  Sex: Male

DRUGS (15)
  1. VIOXX [Suspect]
     Indication: ARTHRALGIA
     Route: 048
     Dates: start: 20020101, end: 20040801
  2. VIOXX [Suspect]
     Indication: BACK PAIN
     Route: 048
     Dates: start: 20020101, end: 20040801
  3. VICODIN [Concomitant]
     Route: 048
  4. ASPIRIN [Concomitant]
     Indication: PROPHYLAXIS
     Route: 048
     Dates: start: 19950101
  5. ISOSORBIDE DINITRATE [Concomitant]
     Route: 048
  6. VALSARTAN [Concomitant]
     Indication: CARDIAC DISORDER
     Route: 048
     Dates: start: 19950101, end: 20040101
  7. METOPROLOL SUCCINATE [Concomitant]
     Indication: HYPERTENSION
     Route: 048
     Dates: start: 19950101
  8. CLONIDINE [Concomitant]
     Route: 048
  9. BUMETANIDE [Concomitant]
     Indication: HYPERTENSION
     Route: 048
     Dates: start: 20040401
  10. BUMETANIDE [Concomitant]
     Indication: CARDIAC DISORDER
     Route: 048
     Dates: start: 20040401
  11. SPIRONOLACTONE [Concomitant]
     Route: 048
     Dates: start: 20030101
  12. ROSUVASTATIN CALCIUM [Concomitant]
     Route: 048
  13. GABAPENTIN [Concomitant]
     Route: 048
  14. CYCLOBENZAPRINE HYDROCHLORIDE [Concomitant]
     Route: 048
  15. TEMAZEPAM [Concomitant]
     Route: 048

REACTIONS (39)
  - ABDOMINAL PAIN [None]
  - ANGIOPATHY [None]
  - BLOOD CREATININE INCREASED [None]
  - BLOOD MAGNESIUM DECREASED [None]
  - BLOOD POTASSIUM DECREASED [None]
  - BLOOD PRESSURE INADEQUATELY CONTROLLED [None]
  - BLOOD PRESSURE INCREASED [None]
  - BLOOD SODIUM DECREASED [None]
  - CARDIAC FAILURE CONGESTIVE [None]
  - CARDIOMEGALY [None]
  - CARDIOMYOPATHY [None]
  - CELLULITIS [None]
  - CEREBROVASCULAR ACCIDENT [None]
  - CHEST DISCOMFORT [None]
  - CHEST PAIN [None]
  - CHEST WALL PAIN [None]
  - DIABETES MELLITUS NON-INSULIN-DEPENDENT [None]
  - DIARRHOEA [None]
  - DIZZINESS [None]
  - DYSPNOEA [None]
  - ELECTROCARDIOGRAM T WAVE INVERSION [None]
  - FALL [None]
  - FATIGUE [None]
  - HEADACHE [None]
  - HEAT EXHAUSTION [None]
  - HYPERHIDROSIS [None]
  - HYPERLIPIDAEMIA [None]
  - HYPERTENSION [None]
  - HYPOAESTHESIA [None]
  - HYPOREFLEXIA [None]
  - LACUNAR INFARCTION [None]
  - MEDICATION ERROR [None]
  - MUSCLE SPASTICITY [None]
  - NAUSEA [None]
  - OEDEMA PERIPHERAL [None]
  - PAIN IN EXTREMITY [None]
  - RETCHING [None]
  - STOMACH DISCOMFORT [None]
  - VENTRICULAR HYPERTROPHY [None]
